FAERS Safety Report 8160727-5 (Version None)
Quarter: 2012Q1

REPORT INFORMATION
  Report Type: 
  Country: None (occurrence: None)
  Receive Date: 20120223
  Receipt Date: 20120208
  Transmission Date: 20120608
  Serious: Yes (Other)
  Sender: FDA-Public Use
  Company Number: PHHY2012US011297

PATIENT
  Age: 59 Year
  Sex: Female

DRUGS (2)
  1. DEFERASIROX [Suspect]
     Indication: IRON OVERLOAD
  2. BUSULFAN [Interacting]
     Dosage: 48 MG, UNK
     Route: 042

REACTIONS (1)
  - DRUG INTERACTION [None]
